FAERS Safety Report 22196891 (Version 2)
Quarter: 2023Q2

REPORT INFORMATION
  Report Type: Spontaneous
  Country: RU (occurrence: RU)
  Receive Date: 20230411
  Receipt Date: 20230615
  Transmission Date: 20230721
  Serious: Yes (Hospitalization, Other)
  Sender: FDA-Public Use
  Company Number: RU-TEVA-2023-RU-2875639

PATIENT
  Age: 60 Year
  Sex: Female

DRUGS (14)
  1. CLARITHROMYCIN [Suspect]
     Active Substance: CLARITHROMYCIN
     Indication: Erysipelas
     Route: 065
  2. CIPROFLOXACIN [Suspect]
     Active Substance: CIPROFLOXACIN
     Indication: Erysipelas
     Route: 065
  3. METHOTREXATE [Suspect]
     Active Substance: METHOTREXATE
     Indication: Rheumatoid arthritis
     Dosage: 10 MG ONCE A WEEK
     Route: 065
     Dates: start: 2006
  4. METHOTREXATE [Suspect]
     Active Substance: METHOTREXATE
     Dosage: 12.5 MG ONCE A WEEK
     Route: 065
     Dates: start: 201007
  5. TOCILIZUMAB [Suspect]
     Active Substance: TOCILIZUMAB
     Indication: Rheumatoid arthritis
     Dosage: 4 MG/KG
     Route: 065
     Dates: start: 201902
  6. TOCILIZUMAB [Suspect]
     Active Substance: TOCILIZUMAB
     Dosage: 8 MG/KG
     Route: 065
  7. RITUXIMAB [Suspect]
     Active Substance: RITUXIMAB
     Indication: Rheumatoid arthritis
     Dosage: AGAIN A COURSE IN AUGUST 2018, 2000 MG
     Route: 065
     Dates: start: 201208
  8. RITUXIMAB [Suspect]
     Active Substance: RITUXIMAB
     Indication: Nephrotic syndrome
  9. SULFASALAZINE [Suspect]
     Active Substance: SULFASALAZINE
     Indication: Rheumatoid arthritis
     Dosage: 1 GRAM DAILY; ONCE A DAY
     Route: 065
     Dates: start: 201007
  10. METHYLPREDNISOLONE [Suspect]
     Active Substance: METHYLPREDNISOLONE
     Indication: Rheumatoid arthritis
     Dosage: 12 MILLIGRAM DAILY; ONCE A DAY
     Route: 065
     Dates: start: 201007
  11. AZATHIOPRINE [Suspect]
     Active Substance: AZATHIOPRINE
     Indication: Secondary amyloidosis
     Dosage: 100 MILLIGRAM DAILY; RECEIVED DRUG UNTIL THE END OF 2015, ONCE A DAY
     Route: 065
     Dates: end: 2015
  12. CYCLOPHOSPHAMIDE [Suspect]
     Active Substance: CYCLOPHOSPHAMIDE
     Indication: Nephrotic syndrome
     Dosage: 400 MG ONCE IN 3 WEEKS
     Route: 065
  13. PREDNISOLONE [Suspect]
     Active Substance: PREDNISOLONE
     Indication: Nephrotic syndrome
     Dosage: 10 MILLIGRAM DAILY; ONCE A DAY
     Route: 065
  14. IRON [Concomitant]
     Active Substance: IRON
     Indication: Supplementation therapy
     Route: 065

REACTIONS (8)
  - Erysipelas [Unknown]
  - Leukopenia [Unknown]
  - Hypertension [Unknown]
  - Nephrotic syndrome [Recovering/Resolving]
  - Secondary amyloidosis [Recovering/Resolving]
  - Acute kidney injury [Recovering/Resolving]
  - Chronic kidney disease [Recovering/Resolving]
  - Treatment failure [Unknown]
